FAERS Safety Report 5248906-8 (Version None)
Quarter: 2007Q1

REPORT INFORMATION
  Report Type: 
  Country: None (occurrence: None)
  Receive Date: 20070223
  Receipt Date: 20070213
  Transmission Date: 20070707
  Serious: Yes (Congenital Anomaly, Other)
  Sender: FDA-Public Use
  Company Number: 152949ISR

PATIENT
  Sex: Female

DRUGS (1)
  1. DOXYCYCLINE [Suspect]
     Indication: MALARIA
     Dosage: 100 MG (100 MG, 1 IN 1 D) TRANSPLACENTAL
     Route: 064
     Dates: end: 20060401

REACTIONS (4)
  - ANKYLOGLOSSIA CONGENITAL [None]
  - APGAR SCORE LOW [None]
  - CAESAREAN SECTION [None]
  - DRUG EXPOSURE DURING PREGNANCY [None]
